FAERS Safety Report 6496652-5 (Version None)
Quarter: 2009Q4

REPORT INFORMATION
  Report Type: 
  Country: None (occurrence: None)
  Receive Date: 20091125
  Receipt Date: 20090709
  Transmission Date: 20100525
  Serious: Yes (Other)
  Sender: FDA-Public Use
  Company Number: 2009BH011287

PATIENT
  Age: 81 Year
  Sex: Male

DRUGS (14)
  1. DIANEAL [Suspect]
     Indication: PERITONEAL DIALYSIS
     Dosage: 10 L; EVERY DAY; IP
     Route: 033
     Dates: start: 20050501
  2. EXTRANEAL [Suspect]
     Indication: PERITONEAL DIALYSIS
     Dosage: 2 L; EVERY DAY; IP
     Route: 033
     Dates: start: 20050501
  3. MUPIROCIN [Concomitant]
  4. ECHINACEA [Concomitant]
  5. GARLIC [Concomitant]
  6. DIALYVITE [Concomitant]
  7. LUTEIN ESTER [Concomitant]
  8. COQ10 [Concomitant]
  9. ROCALTROL [Concomitant]
  10. PRILOSEC [Concomitant]
  11. POTASSIUM [Concomitant]
  12. FISH OIL [Concomitant]
  13. FLAXSEED OIL [Concomitant]
  14. PSPT [Concomitant]

REACTIONS (2)
  - PERITONEAL DIALYSIS COMPLICATION [None]
  - PERITONITIS [None]
